FAERS Safety Report 9339364 (Version 2)
Quarter: 2014Q3

REPORT INFORMATION
  Report Type: Spontaneous
  Country: US (occurrence: US)
  Receive Date: 20130610
  Receipt Date: 20140822
  Transmission Date: 20150326
  Serious: Yes (Hospitalization)
  Sender: FDA-Public Use
  Company Number: US-BAYER-2013-070863

PATIENT
  Age: 45 Year
  Sex: Female
  Weight: 56.69 kg

DRUGS (6)
  1. PREDNISONE. [Concomitant]
     Active Substance: PREDNISONE
     Dosage: 10 MG DAILY, 20 MG WHEN HAS FLARE
     Route: 048
     Dates: start: 20120825
  2. MESALAMINE. [Concomitant]
     Active Substance: MESALAMINE
     Dosage: 1600 MG, BID
     Route: 048
  3. YASMIN [Suspect]
     Active Substance: DROSPIRENONE\ETHINYL ESTRADIOL
     Dosage: UNK
     Dates: start: 2012
  4. ASACOL [Concomitant]
     Active Substance: MESALAMINE
     Dosage: 1600 MG, BID
     Route: 048
     Dates: start: 20120825
  5. OCELLA [Suspect]
     Active Substance: DROSPIRENONE\ETHINYL ESTRADIOL
     Dosage: UNK
     Route: 048
     Dates: start: 2012
  6. YAZ [Suspect]
     Active Substance: DROSPIRENONE\ETHINYL ESTRADIOL
     Dosage: UNK
     Route: 048
     Dates: start: 2012

REACTIONS (4)
  - Fear of disease [None]
  - Injury [None]
  - Pulmonary embolism [None]
  - Pain [None]

NARRATIVE: CASE EVENT DATE: 20120825
